FAERS Safety Report 10046947 (Version 5)
Quarter: 2015Q1

REPORT INFORMATION
  Report Type: Report from Study
  Country: US (occurrence: US)
  Receive Date: 20140331
  Receipt Date: 20150203
  Transmission Date: 20150720
  Serious: Yes (Hospitalization, Other)
  Sender: FDA-Public Use
  Company Number: US-ALEXION-A201400868

PATIENT

DRUGS (2)
  1. SOLIRIS [Suspect]
     Active Substance: ECULIZUMAB
     Dosage: 900 MG, Q2W
     Route: 042
     Dates: start: 20140228
  2. SOLIRIS [Suspect]
     Active Substance: ECULIZUMAB
     Indication: PAROXYSMAL NOCTURNAL HAEMOGLOBINURIA
     Dosage: 600 MG, QW
     Route: 042
     Dates: start: 20140228

REACTIONS (19)
  - Rash pruritic [Recovering/Resolving]
  - Urticaria [Unknown]
  - Haemolysis [Unknown]
  - Abdominal pain [Not Recovered/Not Resolved]
  - Chromaturia [Unknown]
  - Hip fracture [Not Recovered/Not Resolved]
  - Fall [Unknown]
  - Increased appetite [Unknown]
  - Abscess drainage [Unknown]
  - Haematocrit increased [Unknown]
  - Abdominal pain upper [Unknown]
  - Unevaluable event [Unknown]
  - Chromaturia [Unknown]
  - Back pain [Unknown]
  - Haemoglobin increased [Unknown]
  - Dysphagia [Unknown]
  - Chromaturia [Unknown]
  - Pyrexia [Recovered/Resolved]
  - Haemoglobin decreased [Unknown]

NARRATIVE: CASE EVENT DATE: 20140228
